FAERS Safety Report 4699242-X (Version None)
Quarter: 2005Q2

REPORT INFORMATION
  Report Type: 
  Country: None (occurrence: None)
  Receive Date: 20050624
  Receipt Date: 20050311
  Transmission Date: 20051028
  Serious: Yes (Hospitalization, Other)
  Sender: FDA-Public Use
  Company Number: US-MERCK-0503USA02711

PATIENT
  Age: 68 Year
  Sex: Female
  Weight: 57 kg

DRUGS (15)
  1. VIOXX [Suspect]
     Indication: BACK PAIN
     Route: 048
     Dates: end: 20030301
  2. [THERAPY UNSPECIFIED] [Concomitant]
     Route: 065
  3. THEOPHYLLINE [Concomitant]
     Route: 065
  4. PLAVIX [Concomitant]
     Route: 065
  5. LIPITOR [Concomitant]
     Route: 065
     Dates: end: 20030101
  6. PREMPRO [Concomitant]
     Route: 065
  7. CATAPRES [Concomitant]
     Route: 065
  8. TENEX [Concomitant]
     Route: 065
  9. ALDOMET (METHYLDOPATE HYDROCHLORIDE) [Concomitant]
     Route: 065
  10. WYTENSIN [Concomitant]
     Route: 065
  11. COZAAR [Concomitant]
     Route: 065
     Dates: start: 20030101
  12. DIOVAN [Concomitant]
     Route: 065
     Dates: start: 20030101
  13. AVAPRO [Concomitant]
     Route: 065
     Dates: start: 20030101
  14. MICARDIS [Concomitant]
     Route: 065
     Dates: start: 20030101
  15. [THERAPY UNSPECIFIED] [Concomitant]
     Route: 065
     Dates: start: 20030101

REACTIONS (7)
  - ANXIETY DISORDER [None]
  - ASTHMA [None]
  - CEREBROVASCULAR ACCIDENT [None]
  - COLONIC POLYP [None]
  - HEADACHE [None]
  - MYOCARDIAL INFARCTION [None]
  - PNEUMONIA [None]
